FAERS Safety Report 18120560 (Version 2)
Quarter: 2020Q3

REPORT INFORMATION
  Report Type: Report from Study
  Country: CR (occurrence: CR)
  Receive Date: 20200806
  Receipt Date: 20200825
  Transmission Date: 20201103
  Serious: Yes (Other)
  Sender: FDA-Public Use
  Company Number: NVSC2020CR128924

PATIENT
  Age: 35 Year
  Sex: Female

DRUGS (2)
  1. GILENYA [Suspect]
     Active Substance: FINGOLIMOD HYDROCHLORIDE
     Dosage: 0.5 MG, QD
     Route: 048
     Dates: start: 20200601
  2. GILENYA [Suspect]
     Active Substance: FINGOLIMOD HYDROCHLORIDE
     Indication: RELAPSING-REMITTING MULTIPLE SCLEROSIS
     Dosage: 0.5 MG, QD
     Route: 048
     Dates: start: 20170504, end: 202004

REACTIONS (13)
  - Nausea [Unknown]
  - Maternal exposure during pregnancy [Unknown]
  - Fear [Unknown]
  - Dry eye [Unknown]
  - Discomfort [Unknown]
  - Urinary tract infection [Unknown]
  - Vertigo [Unknown]
  - Vision blurred [Unknown]
  - Abortion spontaneous [Unknown]
  - Fatigue [Unknown]
  - Asthenia [Unknown]
  - Cystitis [Unknown]
  - Crying [Unknown]

NARRATIVE: CASE EVENT DATE: 2020
